FAERS Safety Report 9405666 (Version 1)
Quarter: 2013Q3

REPORT INFORMATION
  Report Type: Spontaneous
  Country: GB (occurrence: GB)
  Receive Date: 20130717
  Receipt Date: 20130717
  Transmission Date: 20140515
  Serious: Yes (Hospitalization, Other)
  Sender: FDA-Public Use
  Company Number: GB-PFIZER INC-2013205688

PATIENT
  Age: 42 Year
  Sex: Male

DRUGS (4)
  1. PREGABALIN [Suspect]
     Indication: NEURALGIA
     Dosage: 600 MG, 1X/DAY
     Route: 048
     Dates: start: 20121121
  2. METHADONE [Concomitant]
  3. CARBAMAZEPINE [Concomitant]
  4. MIRTAZAPINE [Concomitant]

REACTIONS (2)
  - Drug dependence [Not Recovered/Not Resolved]
  - Withdrawal syndrome [Not Recovered/Not Resolved]
